FAERS Safety Report 11331613 (Version 1)
Quarter: 2015Q3

REPORT INFORMATION
  Report Type: Spontaneous
  Country: ES (occurrence: ES)
  Receive Date: 20150803
  Receipt Date: 20150803
  Transmission Date: 20151125
  Serious: Yes (Hospitalization)
  Sender: FDA-Public Use
  Company Number: ES-MYLANLABS-2015M1025345

PATIENT

DRUGS (4)
  1. ETANERCEPT [Suspect]
     Active Substance: ETANERCEPT
     Indication: IMMUNOSUPPRESSANT DRUG THERAPY
     Route: 065
     Dates: start: 201211
  2. METHOTREXATE [Suspect]
     Active Substance: METHOTREXATE
     Indication: IMMUNOSUPPRESSANT DRUG THERAPY
     Route: 065
     Dates: start: 201211
  3. ADALIMUMAB [Suspect]
     Active Substance: ADALIMUMAB
     Indication: IMMUNOSUPPRESSANT DRUG THERAPY
     Route: 065
     Dates: start: 2009
  4. LEFLUNOMIDE. [Suspect]
     Active Substance: LEFLUNOMIDE
     Indication: IMMUNOSUPPRESSANT DRUG THERAPY
     Route: 065
     Dates: start: 2009

REACTIONS (2)
  - Malignant neoplasm of conjunctiva [Recovered/Resolved]
  - Squamous cell carcinoma [Recovered/Resolved]
